FAERS Safety Report 8408051-7 (Version None)
Quarter: 2012Q2

REPORT INFORMATION
  Report Type: 
  Country: None (occurrence: None)
  Receive Date: 20120323
  Receipt Date: 20110725
  Transmission Date: 20120825
  Serious: Yes (Hospitalization)
  Sender: FDA-Public Use
  Company Number: 163-21880-11042621

PATIENT
  Age: 57 Year
  Sex: Male

DRUGS (15)
  1. GOLYTELY (GOLYTELY) [Concomitant]
  2. SOTALOL HCL [Concomitant]
  3. CALCIUM CARBONATE [Concomitant]
  4. DEXAMETHASONE [Concomitant]
  5. GLUTAMINE (LEVOGLUTAMIDE) [Concomitant]
  6. PRAVACHOL [Concomitant]
  7. ASCORBIC ACID [Concomitant]
  8. PLAVIX [Concomitant]
  9. ACETAMINOPHEN [Concomitant]
  10. BORTEZOMIB [Concomitant]
  11. PREGABALIN [Concomitant]
  12. REVLIMID [Suspect]
     Indication: MULTIPLE MYELOMA
     Dosage: SEE IMAGE
     Route: 048
     Dates: start: 20100501, end: 20110101
  13. REVLIMID [Suspect]
     Indication: MULTIPLE MYELOMA
     Dosage: SEE IMAGE
     Route: 048
     Dates: start: 20110101, end: 20110411
  14. REVLIMID [Suspect]
     Indication: MULTIPLE MYELOMA
     Dosage: SEE IMAGE
     Route: 048
     Dates: start: 20091019, end: 20091119
  15. REVLIMID [Suspect]
     Indication: MULTIPLE MYELOMA
     Dosage: SEE IMAGE
     Route: 048
     Dates: start: 20091119, end: 20091221

REACTIONS (12)
  - PAIN IN JAW [None]
  - BRADYCARDIA [None]
  - NIGHT SWEATS [None]
  - WEIGHT DECREASED [None]
  - WEIGHT [None]
  - MUSCLE SPASMS [None]
  - PAIN [None]
  - PNEUMONIA [None]
  - URTICARIA [None]
  - VOMITING [None]
  - FATIGUE [None]
  - NAUSEA [None]
